FAERS Safety Report 14097027 (Version 3)
Quarter: 2017Q4

REPORT INFORMATION
  Report Type: Spontaneous
  Country: US (occurrence: US)
  Receive Date: 20171017
  Receipt Date: 20171120
  Transmission Date: 20180321
  Serious: No
  Sender: FDA-Public Use
  Company Number: US-PFIZER INC-2017444142

PATIENT
  Age: 68 Year
  Sex: Female
  Weight: 60.77 kg

DRUGS (1)
  1. SUTENT [Suspect]
     Active Substance: SUNITINIB MALATE
     Indication: RENAL CANCER METASTATIC
     Dosage: 50 MG, CYCLIC (D1-28 Q42 DAYS)
     Route: 048
     Dates: start: 20171009

REACTIONS (9)
  - Abdominal pain [Unknown]
  - Decreased appetite [Unknown]
  - Neoplasm progression [Unknown]
  - Fatigue [Not Recovered/Not Resolved]
  - Back pain [Unknown]
  - Headache [Not Recovered/Not Resolved]
  - Hallucination [Unknown]
  - Vision blurred [Unknown]
  - Cough [Not Recovered/Not Resolved]
